FAERS Safety Report 5130219-6 (Version None)
Quarter: 2006Q4

REPORT INFORMATION
  Report Type: 
  Country: None (occurrence: None)
  Receive Date: 20061019
  Receipt Date: 20061010
  Transmission Date: 20070319
  Serious: Yes (Other)
  Sender: FDA-Public Use
  Company Number: US-JNJFOC-20060805399

PATIENT
  Sex: Female
  Weight: 63.5 kg

DRUGS (12)
  1. REMICADE [Suspect]
     Route: 042
     Dates: start: 20040801, end: 20060818
  2. REMICADE [Suspect]
     Route: 042
     Dates: start: 20040801, end: 20060818
  3. REMICADE [Suspect]
     Indication: RHEUMATOID ARTHRITIS
     Route: 042
     Dates: start: 20040801, end: 20060818
  4. BENADRYL [Concomitant]
     Indication: PREMEDICATION
  5. ZYRTEC [Concomitant]
     Indication: PREMEDICATION
  6. METHOTREXATE [Concomitant]
     Indication: PREMEDICATION
  7. SULINDAC [Concomitant]
  8. FOLIC ACID [Concomitant]
  9. GLUCOSAMINE CHONDROITIN [Concomitant]
  10. CALCIUM WITH VITAMIN D [Concomitant]
  11. FLEXERIL [Concomitant]
  12. HYDROCHLOROTHIAZIDE [Concomitant]

REACTIONS (9)
  - BACK PAIN [None]
  - BLOOD PRESSURE DECREASED [None]
  - DEPRESSED LEVEL OF CONSCIOUSNESS [None]
  - DISORIENTATION [None]
  - DYSPNOEA [None]
  - INFUSION RELATED REACTION [None]
  - LETHARGY [None]
  - MUSCLE SPASMS [None]
  - ORTHOSTATIC HYPOTENSION [None]
